FAERS Safety Report 17295471 (Version 1)
Quarter: 2020Q1

REPORT INFORMATION
  Report Type: Report from Study
  Country: US (occurrence: US)
  Receive Date: 20200121
  Receipt Date: 20200121
  Transmission Date: 20200409
  Serious: Yes (Hospitalization)
  Sender: FDA-Public Use
  Company Number: NVSC2020US014594

PATIENT
  Sex: Female

DRUGS (4)
  1. ENTRESTO [Suspect]
     Active Substance: SACUBITRIL\VALSARTAN
     Dosage: 0.5 DF(24 MG SACUBITRIL/26 MG VALSARTAN), BID
     Route: 048
  2. LASIX [Suspect]
     Active Substance: FUROSEMIDE
     Dosage: 20 MG
     Route: 065
  3. ENTRESTO [Suspect]
     Active Substance: SACUBITRIL\VALSARTAN
     Indication: CARDIAC FAILURE
     Dosage: 50 MG(24 MG SACUBITRIL/26 MG VALSARTAN), BID
     Route: 048
     Dates: start: 201912
  4. LASIX [Suspect]
     Active Substance: FUROSEMIDE
     Indication: PRODUCT USED FOR UNKNOWN INDICATION
     Dosage: 40 MG
     Route: 065

REACTIONS (2)
  - Hypotension [Recovering/Resolving]
  - Wrong technique in product usage process [Unknown]
